FAERS Safety Report 9065243 (Version 1)
Quarter: 2013Q1

REPORT INFORMATION
  Report Type: Spontaneous
  Country: IT (occurrence: IT)
  Receive Date: 20130128
  Receipt Date: 20130128
  Transmission Date: 20140127
  Serious: Yes (Other)
  Sender: FDA-Public Use
  Company Number: PHHY2013IT007175

PATIENT
  Sex: Female

DRUGS (2)
  1. ZOMETA [Suspect]
     Indication: RENAL CANCER STAGE IV
     Dosage: 4 MG, MONTHLY
     Route: 042
     Dates: start: 20070101, end: 20091231
  2. SUTENT [Suspect]
     Indication: RENAL CANCER STAGE IV
     Dosage: 25 MG, UNK
     Route: 048
     Dates: start: 20090101, end: 20110301

REACTIONS (1)
  - Osteonecrosis of jaw [Not Recovered/Not Resolved]
